FAERS Safety Report 16491495 (Version 1)
Quarter: 2019Q3

REPORT INFORMATION
  Report Type: Spontaneous
  Country: US (occurrence: US)
  Receive Date: 20190627
  Receipt Date: 20190627
  Transmission Date: 20191004
  Serious: Yes (Hospitalization)
  Sender: FDA-Public Use
  Company Number: None

PATIENT
  Age: 75 Year
  Sex: Female

DRUGS (7)
  1. ENBREL [Suspect]
     Active Substance: ETANERCEPT
     Indication: PRODUCT USED FOR UNKNOWN INDICATION
     Dosage: ?          OTHER FREQUENCY:WEEKLY;?
     Route: 058
     Dates: start: 20180803
  2. PREDNISONE TAB 10 MG [Concomitant]
  3. TRAMADOL HCL TAB 500 MG [Concomitant]
  4. FREESTYLE TES LITE [Concomitant]
  5. METOPROLOL SUC TAB 25 MG ER [Concomitant]
  6. ALENDRONATE [Concomitant]
     Active Substance: ALENDRONATE SODIUM
  7. PREDNISONE TAB 10 MG [Concomitant]

REACTIONS (2)
  - Spinal fracture [None]
  - Fall [None]
